FAERS Safety Report 23478058 (Version 1)
Quarter: 2024Q1

REPORT INFORMATION
  Report Type: Spontaneous
  Country: US (occurrence: US)
  Receive Date: 20240204
  Receipt Date: 20240204
  Transmission Date: 20240410
  Serious: Yes (Life-Threatening, Hospitalization, Other)
  Sender: FDA-Public Use
  Company Number: None

PATIENT
  Age: 61 Year
  Sex: Female

DRUGS (4)
  1. FLUOXETINE HYDROCHLORIDE [Interacting]
     Active Substance: FLUOXETINE HYDROCHLORIDE
     Indication: Premenstrual syndrome
     Dosage: EXTENDED RELEASE
     Route: 065
  2. METHYLENE BLUE [Interacting]
     Active Substance: METHYLENE BLUE
     Indication: Vasoplegia syndrome
     Dosage: 300 MILLIGRAM, TOTAL; TWO DOSES WERE GIVEN ON POSTOPERATIVE DAY ZERO (POD#0; DEFINED AS DAY OF SURGE
     Route: 042
  3. MEPERIDINE [Interacting]
     Active Substance: MEPERIDINE
     Indication: Product used for unknown indication
     Dosage: 25 MILLIGRAM, TOTAL
     Route: 042
  4. BUPROPION [Interacting]
     Active Substance: BUPROPION
     Indication: Premenstrual syndrome
     Dosage: UNK
     Route: 065

REACTIONS (2)
  - Serotonin syndrome [Recovered/Resolved]
  - Drug interaction [Recovered/Resolved]
